FAERS Safety Report 8156932-4 (Version None)
Quarter: 2012Q1

REPORT INFORMATION
  Report Type: 
  Country: None (occurrence: None)
  Receive Date: 20120222
  Receipt Date: 20120215
  Transmission Date: 20120608
  Serious: Yes (Other)
  Sender: FDA-Public Use
  Company Number: DE-ALEXION-A201200268

PATIENT
  Sex: Male

DRUGS (6)
  1. SOLIRIS [Suspect]
     Indication: HAEMOLYTIC URAEMIC SYNDROME
     Dosage: 600 MG, QW
     Route: 042
     Dates: start: 20110616
  2. BELOKEN [Concomitant]
     Dosage: 47.5 MG, QD
     Route: 048
  3. KEPINOL [Concomitant]
     Dosage: 25 MG, BID
     Route: 048
  4. DELIX PLUS [Concomitant]
     Dosage: 1 TAB QD
     Route: 048
  5. AMLODIPINE [Concomitant]
     Dosage: 5 MG, QD
     Route: 048
  6. SOLIRIS [Suspect]
     Dosage: 600 MG, Q2W
     Route: 042

REACTIONS (1)
  - VARICELLA [None]
